FAERS Safety Report 21901622 (Version 2)
Quarter: 2023Q1

REPORT INFORMATION
  Report Type: Spontaneous
  Country: JP (occurrence: JP)
  Receive Date: 20230124
  Receipt Date: 20230130
  Transmission Date: 20230418
  Serious: Yes (Other)
  Sender: FDA-Public Use
  Company Number: JP-JNJFOC-20230138980

PATIENT
  Age: 8 Decade
  Sex: Male

DRUGS (1)
  1. DARATUMUMAB [Suspect]
     Active Substance: DARATUMUMAB
     Indication: Primary amyloidosis
     Dosage: DOSE UNKNOWN
     Route: 058
     Dates: end: 20220715

REACTIONS (2)
  - Thrombotic microangiopathy [Unknown]
  - Coombs direct test positive [Unknown]

NARRATIVE: CASE EVENT DATE: 20220801
